FAERS Safety Report 10681730 (Version 1)
Quarter: 2014Q4

REPORT INFORMATION
  Report Type: Spontaneous
  Country: FR (occurrence: FR)
  Receive Date: 20141230
  Receipt Date: 20141230
  Transmission Date: 20150529
  Serious: Yes (Hospitalization)
  Sender: FDA-Public Use
  Company Number: FR-TEVA-531096ISR

PATIENT
  Age: 22 Year
  Sex: Female

DRUGS (2)
  1. ACTIQ [Suspect]
     Active Substance: FENTANYL CITRATE
     Indication: PAIN
     Dosage: 200 OR 400 MICROGRAMMES, 2 TO 6 TIMES A DAY
     Route: 002
     Dates: start: 200610, end: 200906
  2. ACUPAN [Suspect]
     Active Substance: NEFOPAM HYDROCHLORIDE
     Dosage: 80 MILLIGRAM DAILY;
     Route: 048
     Dates: start: 200610, end: 201403

REACTIONS (7)
  - Drug intolerance [Unknown]
  - Toxicity to various agents [Unknown]
  - Hallucination, auditory [Unknown]
  - Arthralgia [Unknown]
  - Hallucination [Unknown]
  - Hepatitis acute [Unknown]
  - Drug dependence [Recovering/Resolving]

NARRATIVE: CASE EVENT DATE: 200610
